FAERS Safety Report 19454666 (Version 1)
Quarter: 2021Q2

REPORT INFORMATION
  Report Type: Spontaneous
  Country: GB (occurrence: GB)
  Receive Date: 20210623
  Receipt Date: 20210623
  Transmission Date: 20210717
  Serious: Yes (Other)
  Sender: FDA-Public Use
  Company Number: GB-PFIZER INC-2021189219

PATIENT
  Age: 7 Year
  Sex: Male

DRUGS (4)
  1. VANCOMYCIN HCL [Suspect]
     Active Substance: VANCOMYCIN HYDROCHLORIDE
     Indication: DEVICE RELATED INFECTION
  2. VANCOMYCIN HCL [Suspect]
     Active Substance: VANCOMYCIN HYDROCHLORIDE
     Indication: BACTERAEMIA
  3. LINEZOLID. [Concomitant]
     Active Substance: LINEZOLID
  4. DAPTOMYCIN. [Suspect]
     Active Substance: DAPTOMYCIN

REACTIONS (5)
  - Drug ineffective for unapproved indication [Unknown]
  - Off label use [Unknown]
  - Lower respiratory tract infection [Unknown]
  - Antimicrobial susceptibility test resistant [Unknown]
  - Therapy non-responder [Unknown]
